FAERS Safety Report 17727517 (Version 1)
Quarter: 2020Q2

REPORT INFORMATION
  Report Type: Spontaneous
  Country: US (occurrence: US)
  Receive Date: 20200429
  Receipt Date: 20200429
  Transmission Date: 20200714
  Serious: No
  Sender: FDA-Public Use
  Company Number: None

PATIENT
  Age: 53 Year
  Sex: Female
  Weight: 79.38 kg

DRUGS (22)
  1. PREGABALIN 150MG [Suspect]
     Active Substance: PREGABALIN
     Indication: NERVE INJURY
     Dosage: 1 PILL 3X DAY BY MOUTH
     Route: 048
     Dates: start: 20190826, end: 202003
  2. PREGABALIN 150MG [Suspect]
     Active Substance: PREGABALIN
     Indication: NEUROPATHY PERIPHERAL
     Dosage: 1 PILL 3X DAY BY MOUTH
     Route: 048
     Dates: start: 20190826, end: 202003
  3. ONDANSETRON [Concomitant]
     Active Substance: ONDANSETRON
  4. TROLAMINE SALICYLATE. [Concomitant]
     Active Substance: TROLAMINE SALICYLATE
  5. PREGABALIN 150MG [Suspect]
     Active Substance: PREGABALIN
     Indication: FIBROMYALGIA
     Dosage: 1 PILL 3X DAY BY MOUTH
     Route: 048
     Dates: start: 20190826, end: 202003
  6. OCUVITE ORAL [Concomitant]
  7. PREGABALIN. [Concomitant]
     Active Substance: PREGABALIN
  8. SYNTHROID [Concomitant]
     Active Substance: LEVOTHYROXINE SODIUM
  9. CLOPIDOGREL [Concomitant]
     Active Substance: CLOPIDOGREL BISULFATE
  10. JANUMET XR [Concomitant]
     Active Substance: METFORMIN HYDROCHLORIDE\SITAGLIPTIN PHOSPHATE
  11. PREGABALIN 150MG [Suspect]
     Active Substance: PREGABALIN
     Indication: TYPE 2 DIABETES MELLITUS
     Dosage: 1 PILL 3X DAY BY MOUTH
     Route: 048
     Dates: start: 20190826, end: 202003
  12. CINNAMON. [Concomitant]
     Active Substance: CINNAMON
  13. LANSOPRAZOLE. [Concomitant]
     Active Substance: LANSOPRAZOLE
  14. PREGABALIN 150MG [Suspect]
     Active Substance: PREGABALIN
     Indication: INTERVERTEBRAL DISC OPERATION
     Dosage: 1 PILL 3X DAY BY MOUTH
     Route: 048
     Dates: start: 20190826, end: 202003
  15. AMITRIPTYLINE [Concomitant]
     Active Substance: AMITRIPTYLINE
  16. METOPROLOL. [Concomitant]
     Active Substance: METOPROLOL
  17. VASCEPA [Concomitant]
     Active Substance: ICOSAPENT ETHYL
  18. ONE-A-DAY WOMENS FORMULA [Concomitant]
  19. CYCLOBENZAPRINE. [Concomitant]
     Active Substance: CYCLOBENZAPRINE
  20. IBUPROFEN. [Concomitant]
     Active Substance: IBUPROFEN
  21. LOSARTAN- HYDROCHLOROTHIAZIDE [Concomitant]
  22. TYLENOL EXTRA STRENGTH [Concomitant]
     Active Substance: ACETAMINOPHEN

REACTIONS (7)
  - Product substitution issue [None]
  - Dizziness [None]
  - Mood altered [None]
  - Anger [None]
  - Vision blurred [None]
  - Confusional state [None]
  - Balance disorder [None]

NARRATIVE: CASE EVENT DATE: 20190909
